FAERS Safety Report 15470387 (Version 2)
Quarter: 2018Q4

REPORT INFORMATION
  Report Type: Spontaneous
  Country: CN (occurrence: CN)
  Receive Date: 20181005
  Receipt Date: 20181005
  Transmission Date: 20190205
  Serious: Yes (Other)
  Sender: FDA-Public Use
  Company Number: PHHY2018CN113271

PATIENT
  Age: 68 Year
  Sex: Female

DRUGS (1)
  1. CICLOSPORIN [Suspect]
     Active Substance: CYCLOSPORINE
     Indication: MYELODYSPLASTIC SYNDROME
     Dosage: 100 MG, BID
     Route: 065

REACTIONS (4)
  - Posterior reversible encephalopathy syndrome [Recovered/Resolved]
  - Product use in unapproved indication [Unknown]
  - Headache [Recovered/Resolved]
  - Visual impairment [Recovered/Resolved]
